FAERS Safety Report 6890032-6 (Version None)
Quarter: 2010Q3

REPORT INFORMATION
  Report Type: 
  Country: None (occurrence: None)
  Receive Date: 20100730
  Receipt Date: 20080711
  Transmission Date: 20110219
  Serious: No
  Sender: FDA-Public Use
  Company Number: US-PFIZER INC-2008058498

PATIENT
  Sex: Male
  Weight: 79.545 kg

DRUGS (3)
  1. LIPITOR [Suspect]
     Indication: BLOOD CHOLESTEROL INCREASED
     Dates: start: 20080701
  2. ACTOS [Concomitant]
     Indication: DIABETES MELLITUS
  3. SITAGLIPTIN [Concomitant]
     Indication: DIABETES MELLITUS

REACTIONS (1)
  - ERECTILE DYSFUNCTION [None]
